FAERS Safety Report 9895762 (Version 2)
Quarter: 2014Q1

REPORT INFORMATION
  Report Type: Spontaneous
  Country: US (occurrence: US)
  Receive Date: 20140213
  Receipt Date: 20140213
  Transmission Date: 20141002
  Serious: No
  Sender: FDA-Public Use
  Company Number: US-BRISTOL-MYERS SQUIBB COMPANY-19444520

PATIENT
  Age: 64 Year
  Sex: Female
  Weight: 79.36 kg

DRUGS (9)
  1. ABATACEPT SUBQ INJECTION 125MG/ML [Suspect]
     Indication: RHEUMATOID ARTHRITIS
     Route: 058
     Dates: start: 201302, end: 20130815
  2. ACTONEL [Concomitant]
  3. GLUCOSAMINE [Concomitant]
  4. MULTIVITAMIN [Concomitant]
  5. FERROUS SULFATE [Concomitant]
  6. ASPIRIN [Concomitant]
  7. CALCIUM + VITAMIN D [Concomitant]
  8. PRAVASTATIN SODIUM [Concomitant]
  9. TYLENOL [Concomitant]

REACTIONS (2)
  - Rheumatoid arthritis [Unknown]
  - Urticaria [Unknown]
